FAERS Safety Report 20597991 (Version 1)
Quarter: 2022Q1

REPORT INFORMATION
  Report Type: Spontaneous
  Country: FR (occurrence: None)
  Receive Date: 20220315
  Receipt Date: 20220315
  Transmission Date: 20220424
  Serious: Yes (Hospitalization)
  Sender: FDA-Public Use
  Company Number: 2022A100915

PATIENT
  Age: 30 Year
  Sex: Male

DRUGS (4)
  1. QUETIAPINE [Suspect]
     Active Substance: QUETIAPINE
     Indication: Psychotic disorder
     Route: 048
     Dates: start: 202104, end: 20210928
  2. LOXAPINE [Suspect]
     Active Substance: LOXAPINE
     Indication: Psychotic disorder
     Route: 048
     Dates: start: 202104, end: 20210928
  3. LEVOMEPROMAZINE [Suspect]
     Active Substance: LEVOMEPROMAZINE
     Indication: Psychotic disorder
     Route: 048
     Dates: start: 202104, end: 20210928
  4. CLOZAPINE [Suspect]
     Active Substance: CLOZAPINE
     Indication: Psychotic disorder
     Route: 048
     Dates: start: 202109, end: 20210928

REACTIONS (1)
  - Neuroleptic malignant syndrome [Recovered/Resolved]

NARRATIVE: CASE EVENT DATE: 20210928
